FAERS Safety Report 14469423 (Version 1)
Quarter: 2018Q1

REPORT INFORMATION
  Report Type: Other
  Country: US (occurrence: US)
  Receive Date: 20180131
  Receipt Date: 20180131
  Transmission Date: 20180509
  Serious: Yes (Hospitalization)
  Sender: FDA-Public Use
  Company Number: US-ACORDA-ACO_140079_2017

PATIENT
  Age: 70 Year
  Sex: Female

DRUGS (3)
  1. AMPYRA [Suspect]
     Active Substance: DALFAMPRIDINE
     Indication: MULTIPLE SCLEROSIS
     Dosage: 10 MG, Q 12 HRS
     Route: 048
     Dates: start: 20130920, end: 201706
  2. BETADINE [Suspect]
     Active Substance: POVIDONE-IODINE
     Indication: PRODUCT USED FOR UNKNOWN INDICATION
     Dosage: UNK
     Route: 065
  3. AMPYRA [Suspect]
     Active Substance: DALFAMPRIDINE
     Dosage: UNK
     Route: 065
     Dates: start: 201710

REACTIONS (8)
  - Spinal compression fracture [Recovered/Resolved]
  - Nausea [Recovered/Resolved]
  - Gait disturbance [Recovering/Resolving]
  - Multiple sclerosis [Recovering/Resolving]
  - Incomplete spinal fusion [Recovered/Resolved]
  - Rash [Recovering/Resolving]
  - Condition aggravated [Recovering/Resolving]
  - Abdominal hernia [Recovered/Resolved]

NARRATIVE: CASE EVENT DATE: 201512
